APPROVED DRUG PRODUCT: HYDROXYZINE HYDROCHLORIDE
Active Ingredient: HYDROXYZINE HYDROCHLORIDE
Strength: 50MG
Dosage Form/Route: TABLET;ORAL
Application: A088122 | Product #001
Applicant: PUREPAC PHARMACEUTICAL CO
Approved: Sep 25, 1984 | RLD: No | RS: No | Type: DISCN